FAERS Safety Report 10707486 (Version 1)
Quarter: 2015Q1

REPORT INFORMATION
  Report Type: Spontaneous
  Country: US (occurrence: None)
  Receive Date: 20150112
  Receipt Date: 20150112
  Transmission Date: 20150721
  Serious: Yes (Other)
  Sender: FDA-Public Use
  Company Number: None

PATIENT
  Sex: Female
  Weight: 200.94 kg

DRUGS (2)
  1. TRAMADOL [Suspect]
     Active Substance: TRAMADOL
     Indication: MENSTRUATION IRREGULAR
     Dosage: 50 MG T-H 4-6 HRS PRN PO
     Route: 048
     Dates: start: 2012
  2. TRAMADOL [Suspect]
     Active Substance: TRAMADOL
     Indication: DYSMENORRHOEA
     Dosage: 50 MG T-H 4-6 HRS PRN PO
     Route: 048
     Dates: start: 2012

REACTIONS (2)
  - Drug ineffective [None]
  - Product substitution issue [None]
